FAERS Safety Report 8860551 (Version 1)
Quarter: 2012Q4

REPORT INFORMATION
  Report Type: 
  Country: US (occurrence: US)
  Receive Date: 20121025
  Receipt Date: 20121025
  Transmission Date: 20130627
  Serious: Yes (Hospitalization, Other)
  Sender: FDA-Public Use
  Company Number: US-PFIZER INC-2012262425

PATIENT
  Sex: Female
  Weight: 84.8 kg

DRUGS (4)
  1. PREMARIN [Suspect]
     Indication: HORMONE REPLACEMENT THERAPY
     Dosage: 1.25 mg, UNK
     Route: 048
  2. COREG [Concomitant]
     Indication: HYPERTENSION
     Dosage: 25 mg, UNK
  3. CLONIDINE [Concomitant]
     Indication: HYPERTENSION
     Dosage: 0.1 mg, UNK
  4. BENAZEPRIL [Concomitant]
     Indication: HYPERTENSION
     Dosage: 40 mg, UNK

REACTIONS (4)
  - Coronary artery bypass [Unknown]
  - Pneumothorax [Unknown]
  - Diabetes mellitus [Unknown]
  - Cardiac disorder [Unknown]
